FAERS Safety Report 5625617-8 (Version None)
Quarter: 2008Q1

REPORT INFORMATION
  Report Type: 
  Country: None (occurrence: None)
  Receive Date: 20080214
  Receipt Date: 20071024
  Transmission Date: 20080703
  Serious: No
  Sender: FDA-Public Use
  Company Number: US-BAYER-US-2007-040647

PATIENT
  Age: 29 Year
  Sex: Female
  Weight: 75 kg

DRUGS (3)
  1. MIRENA [Suspect]
     Indication: MENORRHAGIA
     Route: 015
     Dates: start: 20070404, end: 20071023
  2. ALEVE [Concomitant]
     Indication: PAIN
  3. HYDROCODONE BITARTRATE [Concomitant]
     Indication: PAIN

REACTIONS (5)
  - ABDOMINAL PAIN [None]
  - COITAL BLEEDING [None]
  - CYST RUPTURE [None]
  - OVARIAN CYST [None]
  - VAGINAL HAEMORRHAGE [None]
